FAERS Safety Report 5757371-3 (Version None)
Quarter: 2008Q2

REPORT INFORMATION
  Report Type: 
  Country: None (occurrence: None)
  Receive Date: 20080603
  Receipt Date: 20080522
  Transmission Date: 20081010
  Serious: Yes (Hospitalization, Other)
  Sender: FDA-Public Use
  Company Number: AU-SANOFI-SYNTHELABO-A01200805418

PATIENT
  Sex: Female

DRUGS (1)
  1. PLAVIX [Suspect]
     Indication: DRUG USE FOR UNKNOWN INDICATION
     Route: 048
     Dates: start: 20051012

REACTIONS (8)
  - ANGINA PECTORIS [None]
  - CONVULSION [None]
  - ENDOMETRIAL CANCER [None]
  - FALL [None]
  - LOSS OF CONSCIOUSNESS [None]
  - LUNG DISORDER [None]
  - RADIATION INJURY [None]
  - SPINAL DISORDER [None]
